FAERS Safety Report 18299999 (Version 1)
Quarter: 2020Q3

REPORT INFORMATION
  Report Type: Report from Study
  Country: US (occurrence: US)
  Receive Date: 20200923
  Receipt Date: 20200923
  Transmission Date: 20201103
  Serious: Yes (Hospitalization, Other)
  Sender: FDA-Public Use
  Company Number: US-BRISTOL-MYERS SQUIBB COMPANY-BMS-2020-075420

PATIENT
  Age: 92 Year
  Sex: Female

DRUGS (1)
  1. APIXABAN [Suspect]
     Active Substance: APIXABAN
     Indication: CEREBROVASCULAR ACCIDENT PROPHYLAXIS
     Dosage: UNK
     Route: 065

REACTIONS (9)
  - Limb injury [Not Recovered/Not Resolved]
  - Contusion [Unknown]
  - SARS-CoV-2 test false negative [Unknown]
  - Pelvic fracture [Unknown]
  - Bone disorder [Unknown]
  - Fall [Unknown]
  - Cyanosis [Unknown]
  - Paraesthesia [Unknown]
  - Wound [Recovering/Resolving]

NARRATIVE: CASE EVENT DATE: 2020
